FAERS Safety Report 8970806 (Version 1)
Quarter: 2012Q4

REPORT INFORMATION
  Report Type: 
  Country: US (occurrence: US)
  Receive Date: 20121218
  Receipt Date: 20121218
  Transmission Date: 20130627
  Serious: No
  Sender: FDA-Public Use
  Company Number: US-PFIZER INC-2012308375

PATIENT
  Age: 58 Year
  Sex: Male
  Weight: 102.49 kg

DRUGS (7)
  1. LYRICA [Suspect]
     Indication: NERVE PAIN
     Dosage: 75 mg, 4x/day
  2. PROCARDIA [Suspect]
     Indication: HYPERTENSION
     Dosage: 60 mg, 1x/day
  3. VIAGRA [Suspect]
     Indication: ERECTILE DYSFUNCTION
     Dosage: 100 mg, as needed
  4. LISINOPRIL [Concomitant]
     Dosage: UNK
  5. HYDROCHLOROTHIAZIDE [Concomitant]
     Dosage: UNK
  6. TOPROL XL [Concomitant]
     Dosage: 100 mg, UNK
  7. CRESTOR [Concomitant]
     Dosage: 20 mg, UNK

REACTIONS (4)
  - Weight increased [Not Recovered/Not Resolved]
  - Pain [Not Recovered/Not Resolved]
  - Hypertension [Not Recovered/Not Resolved]
  - Oedema peripheral [Not Recovered/Not Resolved]
